FAERS Safety Report 9252948 (Version 1)
Quarter: 2013Q2

REPORT INFORMATION
  Report Type: Spontaneous
  Country: BE (occurrence: BE)
  Receive Date: 20130424
  Receipt Date: 20130424
  Transmission Date: 20140414
  Serious: Yes (Death, Hospitalization)
  Sender: FDA-Public Use
  Company Number: BE-B.I. PHARMACEUTICALS,INC./RIDGEFIELD-2013-BL-00204BL

PATIENT
  Sex: Female

DRUGS (5)
  1. PRADAXA [Suspect]
     Indication: ATRIAL FIBRILLATION
     Dosage: 220 MG
     Dates: start: 201210, end: 201303
  2. CORDARONE [Concomitant]
     Indication: HEART RATE ABNORMAL
  3. LIPENTHYL [Concomitant]
     Indication: BLOOD CHOLESTEROL ABNORMAL
  4. PROZAC [Concomitant]
     Indication: DEPRESSION
  5. PANTOMED [Concomitant]
     Indication: GASTRIC ULCER

REACTIONS (3)
  - Cardiac failure [Fatal]
  - Hypovolaemia [Unknown]
  - Rectal haemorrhage [Unknown]
